FAERS Safety Report 11941660 (Version 1)
Quarter: 2016Q1

REPORT INFORMATION
  Report Type: Spontaneous
  Country: LK (occurrence: LK)
  Receive Date: 20160123
  Receipt Date: 20160123
  Transmission Date: 20160526
  Serious: Yes (Hospitalization)
  Sender: FDA-Public Use
  Company Number: LK-AUROBINDO-AUR-APL-2016-00349

PATIENT
  Age: 74 Year
  Sex: Male

DRUGS (1)
  1. AMOXICILLIN+CLAVULANIC ACID [Suspect]
     Active Substance: AMOXICILLIN\CLAVULANIC ACID
     Indication: URINARY TRACT INFECTION
     Dosage: 1.2 G, UNK
     Route: 042

REACTIONS (12)
  - Anaphylactic shock [Recovered/Resolved]
  - Hyperhidrosis [Recovered/Resolved]
  - Acute coronary syndrome [Recovered/Resolved]
  - Rash maculo-papular [Recovered/Resolved]
  - Electrocardiogram ST segment elevation [Recovered/Resolved]
  - Malaise [Recovered/Resolved]
  - Palpitations [Recovered/Resolved]
  - Chest discomfort [Recovered/Resolved]
  - Pruritus [Recovered/Resolved]
  - Kounis syndrome [Recovered/Resolved]
  - Left ventricular hypertrophy [Recovered/Resolved]
  - Diastolic dysfunction [Recovered/Resolved]
